FAERS Safety Report 7132675-0 (Version None)
Quarter: 2010Q4

REPORT INFORMATION
  Report Type: 
  Country: None (occurrence: None)
  Receive Date: 20101130
  Receipt Date: 20101130
  Transmission Date: 20110411
  Serious: Yes (Other)
  Sender: FDA-Public Use
  Company Number: None

PATIENT
  Age: 65 Year
  Sex: Female
  Weight: 63.5036 kg

DRUGS (1)
  1. E-Z PAQUE EZ EM [Suspect]
     Indication: SCAN WITH CONTRAST
     Dosage: 6 OZ 1 PO
     Route: 048
     Dates: start: 20101123, end: 20101123

REACTIONS (7)
  - CONTRAST MEDIA REACTION [None]
  - GASTROOESOPHAGEAL REFLUX DISEASE [None]
  - HEADACHE [None]
  - NAUSEA [None]
  - PHARYNGEAL OEDEMA [None]
  - PRURITUS [None]
  - TINNITUS [None]
